FAERS Safety Report 11876654 (Version 2)
Quarter: 2016Q1

REPORT INFORMATION
  Report Type: Spontaneous
  Country: US (occurrence: US)
  Receive Date: 20151229
  Receipt Date: 20160218
  Transmission Date: 20160526
  Serious: Yes (Other)
  Sender: FDA-Public Use
  Company Number: US-IMPAX LABORATORIES, INC-2015-IPXL-01319

PATIENT
  Age: 35 Year
  Sex: Male

DRUGS (2)
  1. MIRTAZAPINE. [Concomitant]
     Active Substance: MIRTAZAPINE
     Indication: BRUGADA SYNDROME
     Route: 065
  2. BUPROPION XL [Suspect]
     Active Substance: BUPROPION
     Indication: BRUGADA SYNDROME
     Dosage: 300 MG, 1 /DAY
     Route: 065

REACTIONS (2)
  - Brugada syndrome [Recovered/Resolved]
  - Condition aggravated [Recovered/Resolved]
